FAERS Safety Report 9869395 (Version 1)
Quarter: 2014Q1

REPORT INFORMATION
  Report Type: Spontaneous
  Country: US (occurrence: US)
  Receive Date: 20140205
  Receipt Date: 20140205
  Transmission Date: 20141002
  Serious: Yes (Hospitalization)
  Sender: FDA-Public Use
  Company Number: US-BAYER-2014-017044

PATIENT
  Age: 25 Year
  Sex: Female
  Weight: 117.1 kg

DRUGS (14)
  1. YAZ [Suspect]
  2. YASMIN [Suspect]
  3. MORPHINE [Concomitant]
     Indication: PAIN MANAGEMENT
  4. PERCOCET [Concomitant]
     Indication: PAIN
     Dosage: 5-325 MG, 1 OR 2 EVERY 6 HOURS AS NEEDED
  5. RELAFEN [Concomitant]
  6. NUBAIN [Concomitant]
     Indication: BACK PAIN
     Dosage: UNK
     Route: 030
     Dates: start: 20070830
  7. PHENERGAN [Concomitant]
     Indication: BACK PAIN
     Dosage: UNK
     Route: 030
     Dates: start: 20070830
  8. DARVOCET-N [Concomitant]
     Indication: PAIN
     Dosage: ONE TO TWO, EVERY 8 HOURS AS NEEDED
  9. IBUPROFEN [Concomitant]
     Dosage: AS NEEDED
  10. SERTRALINE [Concomitant]
     Indication: DEPRESSION
     Dosage: 50 MG, DAILY
  11. FERROUS SULFATE [Concomitant]
     Dosage: 325 MG, ONCE DAILY
  12. METFORMIN ER [Concomitant]
     Dosage: 1000 MG, BID
     Route: 048
  13. LUNESTA [Concomitant]
     Indication: SLEEP DISORDER THERAPY
  14. MICRONOR [Concomitant]

REACTIONS (1)
  - Deep vein thrombosis [Recovered/Resolved]
